FAERS Safety Report 16065568 (Version 2)
Quarter: 2019Q1

REPORT INFORMATION
  Report Type: Spontaneous
  Country: ZA (occurrence: ZA)
  Receive Date: 20190313
  Receipt Date: 20190320
  Transmission Date: 20190418
  Serious: Yes (Hospitalization, Other)
  Sender: FDA-Public Use
  Company Number: ZA-AMGEN-ZAFSP2019037972

PATIENT
  Age: 78 Year
  Sex: Male

DRUGS (1)
  1. ENBREL [Suspect]
     Active Substance: ETANERCEPT
     Indication: RHEUMATOID ARTHRITIS
     Dosage: 50 MILLIGRAM, QWK
     Route: 058
     Dates: start: 201808

REACTIONS (4)
  - Road traffic accident [Recovering/Resolving]
  - Upper limb fracture [Recovering/Resolving]
  - Blister [Unknown]
  - Foot fracture [Recovering/Resolving]

NARRATIVE: CASE EVENT DATE: 20190211
